FAERS Safety Report 9471773 (Version 1)
Quarter: 2013Q3

REPORT INFORMATION
  Report Type: Spontaneous
  Country: FR (occurrence: FR)
  Receive Date: 20130822
  Receipt Date: 20130822
  Transmission Date: 20140515
  Serious: Yes (Hospitalization, Disabling)
  Sender: FDA-Public Use
  Company Number: FR-GLAXOSMITHKLINE-B0909085A

PATIENT
  Age: 46 Year
  Sex: Male
  Weight: 62 kg

DRUGS (4)
  1. REQUIP [Suspect]
     Indication: PARKINSON^S DISEASE
     Dosage: 12MG PER DAY
     Route: 048
     Dates: start: 201303, end: 20130704
  2. MIOREL [Concomitant]
     Route: 065
  3. LYRICA [Concomitant]
     Route: 065
  4. AZILECT [Concomitant]
     Dosage: 1MG PER DAY
     Route: 065

REACTIONS (8)
  - Tremor [Not Recovered/Not Resolved]
  - Gait disturbance [Not Recovered/Not Resolved]
  - Balance disorder [Not Recovered/Not Resolved]
  - Musculoskeletal stiffness [Not Recovered/Not Resolved]
  - Drug withdrawal syndrome [Not Recovered/Not Resolved]
  - Muscle contracture [Not Recovered/Not Resolved]
  - Pain [Not Recovered/Not Resolved]
  - Laryngospasm [Not Recovered/Not Resolved]
